FAERS Safety Report 11028192 (Version 1)
Quarter: 2015Q2

REPORT INFORMATION
  Report Type: Spontaneous
  Country: US (occurrence: US)
  Receive Date: 20150414
  Receipt Date: 20150414
  Transmission Date: 20150821
  Serious: Yes (Hospitalization)
  Sender: FDA-Public Use
  Company Number: US-B.I. PHARMACEUTICALS,INC./RIDGEFIELD-2015-BI-18743BP

PATIENT
  Age: 58 Year
  Sex: Male
  Weight: 84 kg

DRUGS (2)
  1. SYMBICORT [Concomitant]
     Active Substance: BUDESONIDE\FORMOTEROL FUMARATE DIHYDRATE
     Indication: HAEMOTHORAX
     Dosage: FORMULATION: INHALATION SPRAY; STRENGTH: 160-4.5 MCG;
     Route: 055
     Dates: start: 201408
  2. SPIRIVA [Suspect]
     Active Substance: TIOTROPIUM BROMIDE MONOHYDRATE
     Indication: HAEMOTHORAX
     Dosage: 18 MCG
     Route: 055
     Dates: start: 20140804

REACTIONS (3)
  - Haemothorax [Not Recovered/Not Resolved]
  - Off label use [Unknown]
  - Mesothelioma [Not Recovered/Not Resolved]

NARRATIVE: CASE EVENT DATE: 20140804
